FAERS Safety Report 20722074 (Version 2)
Quarter: 2022Q2

REPORT INFORMATION
  Report Type: Report from Study
  Country: DE (occurrence: None)
  Receive Date: 20220418
  Receipt Date: 20220512
  Transmission Date: 20220721
  Serious: Yes (Hospitalization)
  Sender: FDA-Public Use
  Company Number: DE-Eisai Medical Research-EC-2022-112816

PATIENT
  Age: 70 Year
  Sex: Female
  Weight: 60 kg

DRUGS (4)
  1. ERIBULIN [Suspect]
     Active Substance: ERIBULIN
     Indication: Breast cancer
     Route: 042
     Dates: start: 20220314, end: 20220411
  2. METOPROLOL [Concomitant]
     Active Substance: METOPROLOL
     Indication: Hypertension
     Dosage: 95MG (0.5)
     Route: 048
     Dates: start: 19830630
  3. OPIPRAMOL [Concomitant]
     Active Substance: OPIPRAMOL
     Indication: Anxiety disorder
     Route: 048
     Dates: start: 20090630
  4. NALOXONE HYDROCHLORIDE\TILIDINE HYDROCHLORIDE [Concomitant]
     Active Substance: NALOXONE HYDROCHLORIDE\TILIDINE HYDROCHLORIDE
     Indication: Pain
     Route: 048
     Dates: start: 20160630

REACTIONS (5)
  - Herpes zoster [Recovered/Resolved with Sequelae]
  - Anaemia [Not Recovered/Not Resolved]
  - Dry eye [Recovered/Resolved]
  - Immune system disorder [Not Recovered/Not Resolved]
  - White blood cell count decreased [Recovered/Resolved]

NARRATIVE: CASE EVENT DATE: 20220314
